FAERS Safety Report 23377746 (Version 1)
Quarter: 2024Q1

REPORT INFORMATION
  Report Type: Spontaneous
  Country: US (occurrence: US)
  Receive Date: 20240108
  Receipt Date: 20240108
  Transmission Date: 20240410
  Serious: No
  Sender: FDA-Public Use
  Company Number: US-SA-2023SA309932

PATIENT
  Age: 55 Year
  Sex: Female

DRUGS (2)
  1. DUPIXENT [Suspect]
     Active Substance: DUPILUMAB
     Indication: Dermatitis allergic
     Dosage: 300 MG, QOW
     Route: 058
     Dates: end: 202312
  2. CERAVE HYDROCORTISONE ANTI ITCH [Concomitant]
     Dosage: UNK
     Route: 003

REACTIONS (2)
  - Injection site pain [Unknown]
  - Drug ineffective [Unknown]
